FAERS Safety Report 15208266 (Version 1)
Quarter: 2018Q3

REPORT INFORMATION
  Report Type: Spontaneous
  Country: US (occurrence: US)
  Receive Date: 20180727
  Receipt Date: 20180727
  Transmission Date: 20181010
  Serious: Yes (Other)
  Sender: FDA-Public Use
  Company Number: PHHY2018US052587

PATIENT
  Age: 82 Year
  Sex: Male

DRUGS (1)
  1. CEFAZOLIN [Suspect]
     Active Substance: CEFAZOLIN
     Indication: PROPHYLAXIS
     Dosage: 1 G, UNK
     Route: 041

REACTIONS (9)
  - Acute hepatic failure [Unknown]
  - Confusional state [Unknown]
  - Nausea [Unknown]
  - Hyperammonaemia [Unknown]
  - Hyponatraemia [Unknown]
  - Abdominal pain [Unknown]
  - Acute kidney injury [Unknown]
  - Drug-induced liver injury [Unknown]
  - Coagulopathy [Unknown]
